FAERS Safety Report 7603526-2 (Version None)
Quarter: 2011Q3

REPORT INFORMATION
  Report Type: 
  Country: None (occurrence: None)
  Receive Date: 20110712
  Receipt Date: 20110628
  Transmission Date: 20111222
  Serious: Yes (Hospitalization)
  Sender: FDA-Public Use
  Company Number: JP-ABBOTT-11P-087-0730528-00

PATIENT
  Sex: Male
  Weight: 51 kg

DRUGS (6)
  1. HUMIRA [Suspect]
     Indication: CROHN'S DISEASE
     Dates: start: 20110128, end: 20110128
  2. HUMIRA [Suspect]
     Dates: start: 20110209, end: 20110209
  3. MESALAMINE [Concomitant]
     Indication: CROHN'S DISEASE
     Route: 048
  4. DEXAMETHASONE SODIUM PHOSPHATE [Concomitant]
     Indication: CROHN'S DISEASE
     Dates: start: 20110425, end: 20110426
  5. PREDNISOLONE [Concomitant]
     Indication: CROHN'S DISEASE
     Route: 048
  6. HUMIRA [Suspect]
     Dates: start: 20110223, end: 20110420

REACTIONS (2)
  - LARGE INTESTINAL OBSTRUCTION [None]
  - CROHN'S DISEASE [None]
